FAERS Safety Report 9206491 (Version 1)
Quarter: 2013Q2

REPORT INFORMATION
  Report Type: Spontaneous
  Country: US (occurrence: None)
  Receive Date: 20130401
  Receipt Date: 20130401
  Transmission Date: 20140414
  Serious: Yes (Hospitalization)
  Sender: FDA-Public Use
  Company Number: None

PATIENT
  Age: 49 Year
  Sex: Female
  Weight: 87.45 kg

DRUGS (14)
  1. PACLITAXEL [Suspect]
     Indication: BREAST CANCER
     Dates: start: 20130304
  2. CISPLATIN [Suspect]
     Indication: BREAST CANCER
     Dates: start: 20130225
  3. RAD001 [Suspect]
     Indication: BREAST CANCER
     Dates: start: 20130225
  4. SERTRALINE [Concomitant]
  5. ZOFRAN [Concomitant]
  6. PROMETHAZINE [Concomitant]
  7. METOCLOPRAMIDE [Concomitant]
  8. MAGIC MOUTHWASH [Concomitant]
  9. VITAMIN D [Concomitant]
  10. DIGOXIN [Concomitant]
  11. LEVOTHYROXINE [Concomitant]
  12. HYDROCODONE-ACETAMINOPHEN [Concomitant]
  13. ZOFRAN [Concomitant]
  14. PROMETHAZINE [Concomitant]

REACTIONS (5)
  - Clostridium difficile colitis [None]
  - Arrhythmia [None]
  - Hypokalaemia [None]
  - Febrile neutropenia [None]
  - Back pain [None]
